FAERS Safety Report 7956951-4 (Version None)
Quarter: 2011Q4

REPORT INFORMATION
  Report Type: 
  Country: None (occurrence: None)
  Receive Date: 20111205
  Receipt Date: 20111205
  Transmission Date: 20120403
  Serious: Yes (Other)
  Sender: FDA-Public Use
  Company Number: None

PATIENT
  Age: 79 Year
  Sex: Female
  Weight: 71.214 kg

DRUGS (1)
  1. PRADAXA [Suspect]

REACTIONS (8)
  - RECTAL HAEMORRHAGE [None]
  - ASTHENIA [None]
  - INTERNATIONAL NORMALISED RATIO DECREASED [None]
  - INTERNATIONAL NORMALISED RATIO INCREASED [None]
  - BLOOD CREATININE INCREASED [None]
  - DEHYDRATION [None]
  - DISEASE RECURRENCE [None]
  - EPISTAXIS [None]
